FAERS Safety Report 9457364 (Version 1)
Quarter: 2013Q3

REPORT INFORMATION
  Report Type: Report from Study
  Country: US (occurrence: US)
  Receive Date: 20130814
  Receipt Date: 20130814
  Transmission Date: 20140515
  Serious: Yes (Hospitalization)
  Sender: FDA-Public Use
  Company Number: PHEH2013US017092

PATIENT
  Sex: Male

DRUGS (2)
  1. MYFORTIC [Suspect]
     Dosage: 360 MG, BID
     Route: 048
  2. MYFORTIC [Suspect]
     Dosage: UNK UKN, UNK
     Route: 048

REACTIONS (1)
  - Nephrolithiasis [Unknown]
